FAERS Safety Report 7526366-1 (Version None)
Quarter: 2011Q2

REPORT INFORMATION
  Report Type: 
  Country: None (occurrence: None)
  Receive Date: 20110606
  Receipt Date: 20090815
  Transmission Date: 20111010
  Serious: Yes (Death, Other)
  Sender: FDA-Public Use
  Company Number: US-BAYER-200929705NA

PATIENT
  Age: 73 Year
  Sex: Male
  Weight: 75 kg

DRUGS (20)
  1. ATROPINE [Concomitant]
     Dosage: 0.4 MG, UNK, X2
     Route: 042
     Dates: start: 20010615, end: 20010615
  2. TRASYLOL [Suspect]
     Dosage: 200 ML, UNK, LOADING DOSE
     Route: 042
     Dates: start: 20010615, end: 20010615
  3. PROTAMINE SULFATE [Concomitant]
     Dosage: 350 MG, UNK
     Route: 042
     Dates: start: 20010615, end: 20010615
  4. VERSED [Concomitant]
     Dosage: 2-3 UNK, UNK
     Route: 042
     Dates: start: 20010615, end: 20010615
  5. TRASYLOL [Suspect]
     Dosage: 20 ML, Q1HR
     Route: 042
     Dates: start: 20010615, end: 20010615
  6. ACETYLSALICYLIC ACID SRT [Concomitant]
     Dosage: 325 MG, UNK
     Route: 048
  7. LOPRESSOR [Concomitant]
     Dosage: 25 MG, BID
     Route: 048
  8. ATROPINE [Concomitant]
     Dosage: 1 MG, ONCE
     Route: 042
     Dates: start: 20010615, end: 20010615
  9. SODIUM BICARBONATE [Concomitant]
     Dosage: 1 AMP, UNK
     Route: 042
     Dates: start: 20010615, end: 20010615
  10. PAVULON [Concomitant]
     Dosage: 4 UNK, UNK
     Route: 042
     Dates: start: 20010615, end: 20010615
  11. TRASYLOL [Suspect]
     Indication: CORONARY ARTERY BYPASS
     Dosage: 1 ML, ONCE
     Route: 042
     Dates: start: 20010615, end: 20010615
  12. IMDUR [Concomitant]
     Dosage: 30 MG, QD
     Route: 048
  13. HEPARIN [Concomitant]
     Dosage: 25000 U, UNK
     Route: 042
     Dates: start: 20010615, end: 20010615
  14. ANCEF [Concomitant]
     Dosage: 1 G, UNK, X3
     Route: 042
     Dates: start: 20010615, end: 20010615
  15. TRASYLOL [Suspect]
     Dosage: 200 ML, UNK
     Route: 042
     Dates: start: 20010615, end: 20010615
  16. LIDOCAINE [Concomitant]
     Dosage: 100 MG, UNK, X2
     Route: 042
     Dates: start: 20010615, end: 20010615
  17. POTASSIUM CHLORIDE [Concomitant]
     Dosage: 10 MG, UNK
     Route: 042
     Dates: start: 20010615, end: 20010615
  18. ZESTRIL [Concomitant]
     Dosage: 5 MG, BID
     Route: 048
  19. RED BLOOD CELLS [Concomitant]
     Dosage: 4 U, UNK
     Route: 042
  20. MAGNESIUM SULFATE [Concomitant]
     Dosage: 2 G, UNK
     Route: 042
     Dates: start: 20010615, end: 20010615

REACTIONS (4)
  - DEATH [None]
  - MULTI-ORGAN FAILURE [None]
  - RENAL FAILURE [None]
  - INJURY [None]
